FAERS Safety Report 15599461 (Version 2)
Quarter: 2018Q4

REPORT INFORMATION
  Report Type: Spontaneous
  Country: CN (occurrence: CN)
  Receive Date: 20181108
  Receipt Date: 20181114
  Transmission Date: 20190205
  Serious: Yes (Hospitalization)
  Sender: FDA-Public Use
  Company Number: CN-PFIZER INC-2018453907

PATIENT
  Age: 78 Year
  Sex: Male
  Weight: 70 kg

DRUGS (6)
  1. PROPAFENONE HYDROCHLORIDE. [Concomitant]
     Active Substance: PROPAFENONE HYDROCHLORIDE
     Indication: ARRHYTHMIA
     Dosage: UNK
     Dates: start: 20060705, end: 20180918
  2. GUAN SHUANG [Concomitant]
     Indication: CAROTID ARTERIOSCLEROSIS
     Dosage: UNK
     Dates: start: 20180301, end: 20180918
  3. CORDARONE [Suspect]
     Active Substance: AMIODARONE HYDROCHLORIDE
     Indication: ATRIAL FIBRILLATION
     Dosage: 0.2 G, DAILY
     Route: 048
     Dates: start: 19990918, end: 2016
  4. BAYASPIRIN [Concomitant]
     Active Substance: ASPIRIN
     Indication: CAROTID ARTERIOSCLEROSIS
     Dosage: UNK
     Dates: start: 20180301, end: 20180918
  5. BETALOC ZOK [Concomitant]
     Active Substance: METOPROLOL SUCCINATE
     Indication: ARRHYTHMIA
     Dosage: UNK
     Dates: start: 20160105, end: 20180918
  6. XIN PING [Concomitant]
     Indication: HYPERTENSION
     Dosage: UNK
     Dates: start: 20150102, end: 20180918

REACTIONS (1)
  - Pulmonary fibrosis [Not Recovered/Not Resolved]

NARRATIVE: CASE EVENT DATE: 20180830
